FAERS Safety Report 15681196 (Version 1)
Quarter: 2018Q4

REPORT INFORMATION
  Report Type: Spontaneous
  Country: US (occurrence: US)
  Receive Date: 20181203
  Receipt Date: 20181203
  Transmission Date: 20190205
  Serious: No
  Sender: FDA-Public Use
  Company Number: US-TEVA-2018-US-975784

PATIENT
  Sex: Female

DRUGS (1)
  1. LORAZEPAM. [Suspect]
     Active Substance: LORAZEPAM
     Indication: FEELING JITTERY
     Route: 065
     Dates: start: 201805

REACTIONS (4)
  - Balance disorder [Unknown]
  - Wrong technique in product usage process [Unknown]
  - Muscular weakness [Unknown]
  - Abdominal pain upper [Not Recovered/Not Resolved]

NARRATIVE: CASE EVENT DATE: 201805
